FAERS Safety Report 7781781-6 (Version None)
Quarter: 2011Q3

REPORT INFORMATION
  Report Type: 
  Country: None (occurrence: None)
  Receive Date: 20110927
  Receipt Date: 20110922
  Transmission Date: 20111222
  Serious: Yes (Death)
  Sender: FDA-Public Use
  Company Number: US-GLAXOSMITHKLINE-A0945893A

PATIENT
  Age: 39 Year
  Sex: Male

DRUGS (2)
  1. PROMACTA [Suspect]
     Indication: THROMBOCYTOPENIA
     Dates: start: 20110222
  2. CORTICOSTEROIDS [Concomitant]
     Indication: THROMBOCYTOPENIA

REACTIONS (1)
  - DEATH [None]
